FAERS Safety Report 5677219-5 (Version None)
Quarter: 2008Q1

REPORT INFORMATION
  Report Type: 
  Country: None (occurrence: None)
  Receive Date: 20080321
  Receipt Date: 20080321
  Transmission Date: 20080703
  Serious: No
  Sender: FDA-Public Use
  Company Number: None

PATIENT
  Sex: Female
  Weight: 97.0698 kg

DRUGS (1)
  1. AVANDIA [Suspect]
     Indication: DIABETES MELLITUS
     Dosage: 4MG BID PO
     Route: 048
     Dates: start: 20060101, end: 20080205

REACTIONS (5)
  - ANAEMIA [None]
  - BONE MARROW FAILURE [None]
  - DISORDER OF ORBIT [None]
  - HYPERPLASIA [None]
  - HYPERTROPHY [None]
